FAERS Safety Report 7158917-3 (Version None)
Quarter: 2010Q4

REPORT INFORMATION
  Report Type: 
  Country: None (occurrence: None)
  Receive Date: 20101214
  Receipt Date: 20101207
  Transmission Date: 20110411
  Serious: Yes (Hospitalization)
  Sender: FDA-Public Use
  Company Number: DE-CEPHALON-2010006414

PATIENT
  Sex: Male
  Weight: 88 kg

DRUGS (3)
  1. TREANDA [Suspect]
     Route: 042
     Dates: start: 20090707, end: 20090901
  2. RITUXIMAB [Suspect]
     Dates: start: 20090706, end: 20090831
  3. GRANISETRON HCL [Concomitant]
     Dates: start: 20090707

REACTIONS (1)
  - PSORIASIS [None]
